FAERS Safety Report 9180477 (Version 2)
Quarter: 2013Q3

REPORT INFORMATION
  Report Type: Spontaneous
  Country: US (occurrence: US)
  Receive Date: 20130322
  Receipt Date: 20130711
  Transmission Date: 20140515
  Serious: No
  Sender: FDA-Public Use
  Company Number: US-BIOGENIDEC-2013BI026463

PATIENT
  Age: 49 Year
  Sex: Female

DRUGS (4)
  1. TYSABRI [Suspect]
     Indication: MULTIPLE SCLEROSIS
     Route: 042
     Dates: start: 20100225
  2. AMPYRA [Concomitant]
     Indication: MULTIPLE SCLEROSIS
  3. PROVIGIL [Concomitant]
     Route: 048
  4. BACLOFEN [Concomitant]
     Route: 048

REACTIONS (8)
  - Fungal infection [Recovered/Resolved]
  - Back pain [Recovered/Resolved]
  - Muscular weakness [Not Recovered/Not Resolved]
  - Musculoskeletal stiffness [Not Recovered/Not Resolved]
  - Neck pain [Recovered/Resolved]
  - Headache [Recovered/Resolved]
  - Vaginitis bacterial [Recovered/Resolved]
  - Multiple sclerosis relapse [Not Recovered/Not Resolved]
